FAERS Safety Report 7301486-5 (Version None)
Quarter: 2011Q1

REPORT INFORMATION
  Report Type: 
  Country: None (occurrence: None)
  Receive Date: 20110218
  Receipt Date: 20100430
  Transmission Date: 20110831
  Serious: No
  Sender: FDA-Public Use
  Company Number: US-BRISTOL-MYERS SQUIBB COMPANY-15087521

PATIENT
  Age: 41 Year
  Sex: Female
  Weight: 57 kg

DRUGS (3)
  1. KENALOG [Suspect]
     Indication: IMMOBILE
     Dates: start: 20090401
  2. KENALOG [Suspect]
     Indication: CERVIX INFLAMMATION
     Dates: start: 20090401
  3. NEURONTIN [Concomitant]

REACTIONS (9)
  - NIGHT SWEATS [None]
  - INSOMNIA [None]
  - DEPRESSION [None]
  - WEIGHT DECREASED [None]
  - ALOPECIA [None]
  - MENSTRUATION IRREGULAR [None]
  - RASH [None]
  - MOOD SWINGS [None]
  - BLISTER [None]
